FAERS Safety Report 8510867-3 (Version None)
Quarter: 2012Q3

REPORT INFORMATION
  Report Type: 
  Country: None (occurrence: None)
  Receive Date: 20120709
  Receipt Date: 20120709
  Transmission Date: 20120928
  Serious: Yes (Hospitalization)
  Sender: FDA-Public Use
  Company Number: None

PATIENT
  Age: 75 Year
  Sex: Female

DRUGS (12)
  1. CINACALCET HYDROCHLORIDE [Concomitant]
  2. OXYBUTYNIN [Concomitant]
  3. FLUTICASONE PROPIONATE [Concomitant]
  4. METOPROLOL TARTRATE [Concomitant]
  5. DEXAMETHASONE [Concomitant]
  6. POTASSIUM CHLORIDE [Concomitant]
  7. REVLIMID [Suspect]
     Indication: MULTIPLE MYELOMA
     Dosage: 15 MG DAILY X 21/35 DAYS BY MOUTH
     Route: 048
     Dates: start: 20080701
  8. EPOETIN [Concomitant]
  9. NORTRIPTYLINE HCL [Concomitant]
  10. SIMVASTATIN [Concomitant]
  11. MOMETASONE/FORMOTEROL [Concomitant]
  12. ALBUTEROL [Concomitant]

REACTIONS (4)
  - COUGH [None]
  - PLEURITIC PAIN [None]
  - LUNG INFILTRATION [None]
  - PNEUMONIA [None]
